FAERS Safety Report 7819141-1 (Version None)
Quarter: 2011Q4

REPORT INFORMATION
  Report Type: 
  Country: None (occurrence: None)
  Receive Date: 20111018
  Receipt Date: 20111004
  Transmission Date: 20120403
  Serious: No
  Sender: FDA-Public Use
  Company Number: US-B.I. PHARMACEUTICALS,INC./RIDGEFIELD-2011-BP-23527BP

PATIENT
  Sex: Female

DRUGS (1)
  1. MIRAPEX [Suspect]
     Indication: RESTLESS LEGS SYNDROME

REACTIONS (3)
  - NAUSEA [None]
  - VOMITING [None]
  - ABDOMINAL PAIN [None]
